FAERS Safety Report 4299984-4 (Version None)
Quarter: 2004Q1

REPORT INFORMATION
  Report Type: 
  Country: None (occurrence: None)
  Receive Date: 20040218
  Receipt Date: 20040130
  Transmission Date: 20041129
  Serious: Yes (Hospitalization)
  Sender: FDA-Public Use
  Company Number: DE_040112909

PATIENT
  Age: 75 Year
  Sex: Female
  Weight: 54 kg

DRUGS (8)
  1. FORTEO [Suspect]
     Indication: OSTEOPOROSIS
     Dosage: 20 UG/DAY
     Dates: start: 20030616
  2. LISINOPRIL [Concomitant]
  3. SIMVASTATIN [Concomitant]
  4. FLUSPIRILENE [Concomitant]
  5. THEOPHYLLINE [Concomitant]
  6. CALCIUM [Concomitant]
  7. VITAMIN D [Concomitant]
  8. LEVOTHYROXINE SODIUM [Concomitant]

REACTIONS (7)
  - ABDOMINAL PAIN [None]
  - ANOREXIA [None]
  - DIZZINESS [None]
  - GASTRIC ULCER [None]
  - MALAISE [None]
  - VOMITING [None]
  - WEIGHT DECREASED [None]
